FAERS Safety Report 14681467 (Version 3)
Quarter: 2018Q2

REPORT INFORMATION
  Report Type: Report from Study
  Country: US (occurrence: US)
  Receive Date: 20180326
  Receipt Date: 20180430
  Transmission Date: 20180711
  Serious: Yes (Other)
  Sender: FDA-Public Use
  Company Number: US-INCYTE CORPORATION-2017IN008522

PATIENT

DRUGS (8)
  1. JAKAFI [Suspect]
     Active Substance: RUXOLITINIB
     Dosage: 5 MG, BID
     Route: 048
     Dates: start: 20170626, end: 20170719
  2. JAKAFI [Suspect]
     Active Substance: RUXOLITINIB
     Indication: POLYCYTHAEMIA VERA
     Dosage: 5 MG, BID
     Route: 048
     Dates: start: 20151110, end: 20170118
  3. HYDREA [Concomitant]
     Active Substance: HYDROXYUREA
     Indication: POLYCYTHAEMIA VERA
     Dosage: 1000 MG MONDAY THROUGH FRIDAY
     Route: 065
     Dates: start: 20140725, end: 20160308
  4. HYDREA [Concomitant]
     Active Substance: HYDROXYUREA
     Dosage: 1000 MG 5 X PER WEEK
     Route: 065
     Dates: start: 20160309, end: 20161101
  5. HYDREA [Concomitant]
     Active Substance: HYDROXYUREA
     Dosage: 1000 MG, 5 X A WEEK
     Route: 065
     Dates: start: 20140818, end: 20150827
  6. HYDREA [Concomitant]
     Active Substance: HYDROXYUREA
     Dosage: 1500 MG 2 TIMES PER WEEK
     Route: 065
     Dates: start: 20140808, end: 20150823
  7. JAKAFI [Suspect]
     Active Substance: RUXOLITINIB
     Dosage: 10 MG, BID
     Route: 048
     Dates: start: 20170720
  8. HYDREA [Concomitant]
     Active Substance: HYDROXYUREA
     Dosage: 500 MG SATURDAY AND SUNDAY
     Route: 065
     Dates: start: 20140726, end: 20160308

REACTIONS (2)
  - Leukopenia [Recovering/Resolving]
  - Thrombocytosis [Recovering/Resolving]

NARRATIVE: CASE EVENT DATE: 20161101
